FAERS Safety Report 4953014-7 (Version None)
Quarter: 2006Q1

REPORT INFORMATION
  Report Type: 
  Country: None (occurrence: None)
  Receive Date: 20060324
  Receipt Date: 20060127
  Transmission Date: 20060701
  Serious: Yes (Life-Threatening)
  Sender: FDA-Public Use
  Company Number: 2006JP000159

PATIENT
  Age: 46 Year
  Sex: Female

DRUGS (9)
  1. CEFAZOLIN [Suspect]
     Indication: DRUG USE FOR UNKNOWN INDICATION
     Route: 042
     Dates: start: 20040920
  2. MIDAZOLAM HCL [Suspect]
  3. FENTANYL [Suspect]
  4. PROPOFOL [Suspect]
     Route: 042
  5. ROCURONIUM BROMIDE [Suspect]
     Route: 042
  6. DUROMINE [Suspect]
     Indication: OBESITY
     Route: 048
  7. INSULIN [Concomitant]
  8. TRITACE [Concomitant]
  9. LIPITOR [Concomitant]

REACTIONS (1)
  - MALIGNANT HYPERTENSION [None]
